FAERS Safety Report 4320300-3 (Version None)
Quarter: 2004Q1

REPORT INFORMATION
  Report Type: 
  Country: None (occurrence: None)
  Receive Date: 20040317
  Receipt Date: 20040304
  Transmission Date: 20041129
  Serious: Yes (Death, Hospitalization, Other)
  Sender: FDA-Public Use
  Company Number: 2004008633

PATIENT
  Age: 53 Year
  Sex: Male

DRUGS (5)
  1. VFEND [Suspect]
     Indication: PNEUMONIA ASPERGILLUS
     Dosage: 400 MG (BID), INTRAVENOUS
     Route: 042
     Dates: start: 20031218, end: 20040210
  2. BACTRIM [Concomitant]
  3. VANCOMYCIN [Concomitant]
  4. BACTRIM [Concomitant]
  5. AMPHOTERICIN B [Concomitant]

REACTIONS (4)
  - HAEMORRHAGE [None]
  - NOCARDIOSIS [None]
  - PULMONARY HAEMORRHAGE [None]
  - THROMBOCYTOPENIA [None]
